FAERS Safety Report 9124779 (Version 1)
Quarter: 2013Q1

REPORT INFORMATION
  Report Type: Spontaneous
  Country: FR (occurrence: FR)
  Receive Date: 20130227
  Receipt Date: 20130227
  Transmission Date: 20140127
  Serious: Yes (Hospitalization)
  Sender: FDA-Public Use
  Company Number: FR-UCBSA-079222

PATIENT
  Age: 68 Year
  Sex: Male

DRUGS (10)
  1. KEPPRA [Suspect]
     Dosage: 4 UNITS DAILY
     Dates: start: 20130124, end: 20130129
  2. BACTRIM [Suspect]
     Dosage: 800 MG DAILY
     Dates: start: 20130123
  3. VANCOMYCINE [Suspect]
     Dates: start: 20130122, end: 20130125
  4. MEROPENEM [Suspect]
     Dates: start: 20130122, end: 20130125
  5. CELLCEPT [Concomitant]
     Dosage: UNKNOWN DOSE
  6. SIROLIMUS [Concomitant]
     Dosage: UNKNOWN DOSE
  7. NORADRENALINE [Concomitant]
     Dosage: UNKNOWN DOSE
  8. ALFENTANIL [Concomitant]
     Dosage: UNKNOWN DOSE
  9. INSULIN [Concomitant]
     Dosage: UNKNOWN DOSE
  10. CLOBAZAM [Concomitant]
     Dosage: UNKNOWN DOSE

REACTIONS (1)
  - Drug reaction with eosinophilia and systemic symptoms [Recovering/Resolving]
